FAERS Safety Report 5503553-5 (Version None)
Quarter: 2007Q4

REPORT INFORMATION
  Report Type: 
  Country: None (occurrence: None)
  Receive Date: 20071031
  Receipt Date: 20071019
  Transmission Date: 20080405
  Serious: Yes (Death, Hospitalization)
  Sender: FDA-Public Use
  Company Number: US-GILEAD-2007-0013286

PATIENT
  Sex: Male
  Weight: 99.88 kg

DRUGS (13)
  1. LETAIRIS [Suspect]
     Indication: PULMONARY HYPERTENSION
     Dates: start: 20070116
  2. LETAIRIS [Suspect]
     Route: 048
     Dates: start: 20070904, end: 20070906
  3. OXYGEN [Concomitant]
     Indication: PULMONARY HYPERTENSION
     Dates: start: 20010801
  4. ATORVASTATIN CALCIUM [Concomitant]
     Indication: BLOOD CHOLESTEROL
     Route: 048
     Dates: start: 20070803
  5. ASPIRIN [Concomitant]
     Indication: CORONARY ARTERY DISEASE
     Route: 048
     Dates: start: 20070516
  6. ASPIRIN [Concomitant]
     Route: 048
     Dates: start: 19960101, end: 20070515
  7. LASIX [Concomitant]
     Indication: FLUID RETENTION
     Route: 048
     Dates: start: 20070625
  8. ALLOPURINOL [Concomitant]
     Route: 048
     Dates: start: 20060101
  9. LYRICA [Concomitant]
     Indication: HERPES ZOSTER
     Route: 048
  10. ZOLOFT [Concomitant]
     Indication: DEPRESSION
     Route: 048
     Dates: start: 20070622
  11. PROTONIX [Concomitant]
     Indication: GASTROOESOPHAGEAL REFLUX DISEASE
     Route: 048
     Dates: start: 20070401
  12. PERCOCET [Concomitant]
     Indication: HERPES ZOSTER
     Route: 048
     Dates: start: 20070601
  13. DOCUSATE SODIUM [Concomitant]
     Indication: CONSTIPATION
     Route: 048
     Dates: start: 20070404

REACTIONS (3)
  - CONFUSIONAL STATE [None]
  - HYPOTENSION [None]
  - TRANSAMINASES INCREASED [None]
